FAERS Safety Report 24630887 (Version 1)
Quarter: 2024Q4

REPORT INFORMATION
  Report Type: Spontaneous
  Country: US (occurrence: US)
  Receive Date: 20241118
  Receipt Date: 20241118
  Transmission Date: 20250114
  Serious: No
  Sender: PAREXEL
  Company Number: US-SECURA BIO, INC.-2023-SECUR-US000118

PATIENT

DRUGS (1)
  1. COPIKTRA [Suspect]
     Active Substance: DUVELISIB
     Indication: Peripheral T-cell lymphoma unspecified
     Dosage: UNK
     Route: 048
     Dates: start: 20210810

REACTIONS (1)
  - Product use in unapproved indication [Unknown]
